FAERS Safety Report 7146537-6 (Version None)
Quarter: 2010Q4

REPORT INFORMATION
  Report Type: 
  Country: None (occurrence: None)
  Receive Date: 20101208
  Receipt Date: 20101203
  Transmission Date: 20110411
  Serious: Yes (Death)
  Sender: FDA-Public Use
  Company Number: PHHY2010US82943

PATIENT
  Age: 85 Year
  Sex: Male

DRUGS (18)
  1. GLEEVEC [Suspect]
     Indication: CHRONIC MYELOID LEUKAEMIA
     Dosage: 100 MG, TID
     Route: 048
     Dates: start: 20090701
  2. POTASSIUM CHLORIDE [Concomitant]
  3. MUCINEX [Concomitant]
  4. TRAVATAN [Concomitant]
  5. PILOCARPINE [Concomitant]
  6. COSOPT [Concomitant]
  7. LASIX [Concomitant]
  8. CALCITRIOL [Concomitant]
  9. PLAVIX [Concomitant]
  10. ASPIRIN [Concomitant]
  11. MECLIZINE HYDROCHLORIDE [Concomitant]
  12. ZOCOR [Concomitant]
  13. NEXIUM [Concomitant]
  14. GLIPIZIDE [Concomitant]
  15. IMDUR [Concomitant]
  16. LOPRESSOR [Concomitant]
  17. AMIODARONE HYDROCHLORIDE [Concomitant]
  18. IRON SUPPLEMENTS [Concomitant]

REACTIONS (1)
  - DEATH [None]
